FAERS Safety Report 20286457 (Version 1)
Quarter: 2022Q1

REPORT INFORMATION
  Report Type: Spontaneous
  Country: US (occurrence: US)
  Receive Date: 20220103
  Receipt Date: 20220103
  Transmission Date: 20220423
  Serious: Yes (Other)
  Sender: FDA-Public Use
  Company Number: US-BoehringerIngelheim-2022-BI-146495

PATIENT
  Age: 66 Year
  Sex: Male

DRUGS (3)
  1. TRULICITY [Suspect]
     Active Substance: DULAGLUTIDE
     Indication: Diabetes mellitus
     Dosage: UNKNOWN??PEN, DISPOSABLE
     Dates: start: 202012
  2. JARDIANCE [Suspect]
     Active Substance: EMPAGLIFLOZIN
     Indication: Diabetes mellitus
     Dosage: UNKNOWN
  3. COVID-19 VACCINE NOS [Concomitant]
     Active Substance: COVID-19 VACCINE NOS
     Indication: Product used for unknown indication
     Dosage: UNK UNK, UNKNOWN

REACTIONS (5)
  - Diabetic foot [Recovering/Resolving]
  - Weight decreased [Unknown]
  - Blood glucose decreased [Unknown]
  - Blood pressure increased [Unknown]
  - Injection site injury [Unknown]

NARRATIVE: CASE EVENT DATE: 20210301
